FAERS Safety Report 5262612-5 (Version None)
Quarter: 2007Q1

REPORT INFORMATION
  Report Type: 
  Country: None (occurrence: None)
  Receive Date: 20070307
  Receipt Date: 20070219
  Transmission Date: 20070707
  Serious: Yes (Hospitalization)
  Sender: FDA-Public Use
  Company Number: 510001E07TUN

PATIENT
  Age: 56 Year
  Sex: Female

DRUGS (2)
  1. CLADRIBINE [Suspect]
     Indication: MULTIPLE SCLEROSIS
     Dosage: (0.875 MG/KG, 7 IN 1 CYCLE, ORAL
     Route: 048
     Dates: start: 20061219, end: 20061223
  2. CLADRIBINE [Suspect]
     Indication: MULTIPLE SCLEROSIS
     Dosage: (0.875 MG/KG, 7 IN 1 CYCLE, ORAL
     Route: 048
     Dates: start: 20070116, end: 20070120

REACTIONS (1)
  - HEPATITIS ACUTE [None]
